FAERS Safety Report 18567931 (Version 2)
Quarter: 2020Q4

REPORT INFORMATION
  Report Type: Spontaneous
  Country: CA (occurrence: CA)
  Receive Date: 20201202
  Receipt Date: 20201219
  Transmission Date: 20210114
  Serious: Yes (Hospitalization)
  Sender: FDA-Public Use
  Company Number: CA-UNITED THERAPEUTICS-UNT-2020-018660

PATIENT
  Age: 9 Year
  Sex: Male

DRUGS (1)
  1. REMODULIN [Suspect]
     Active Substance: TREPROSTINIL
     Indication: PRODUCT USED FOR UNKNOWN INDICATION
     Dosage: UNK, CONTINUING
     Route: 058

REACTIONS (7)
  - Infusion site swelling [Unknown]
  - Infusion site extravasation [Unknown]
  - Liver disorder [Unknown]
  - Subcutaneous drug absorption impaired [Not Recovered/Not Resolved]
  - Presyncope [Recovered/Resolved]
  - Dizziness [Not Recovered/Not Resolved]
  - Infusion site erythema [Unknown]

NARRATIVE: CASE EVENT DATE: 202011
